FAERS Safety Report 4702422-8 (Version None)
Quarter: 2005Q2

REPORT INFORMATION
  Report Type: 
  Country: None (occurrence: None)
  Receive Date: 20050629
  Receipt Date: 20050624
  Transmission Date: 20051028
  Serious: Yes (Hospitalization)
  Sender: FDA-Public Use
  Company Number: GB-BRISTOL-MYERS SQUIBB COMPANY-13015375

PATIENT
  Age: 56 Year
  Sex: Female
  Weight: 66 kg

DRUGS (8)
  1. CISPLATIN [Suspect]
     Indication: LUNG NEOPLASM MALIGNANT
     Route: 042
     Dates: start: 20050516, end: 20050517
  2. ETOPOSIDE [Suspect]
     Indication: LUNG NEOPLASM MALIGNANT
     Route: 042
     Dates: start: 20050516, end: 20050518
  3. METOCLOPRAMIDE [Concomitant]
     Indication: NAUSEA
     Route: 048
  4. OMEPRAZOLE [Concomitant]
     Indication: OESOPHAGITIS
     Route: 048
  5. GRANISETRON [Concomitant]
     Indication: NAUSEA
     Route: 048
  6. BISACODYL [Concomitant]
     Indication: CONSTIPATION
     Route: 048
  7. CO-CODAMOL [Concomitant]
     Indication: PAIN
     Route: 048
  8. ORAMORPH SR [Concomitant]
     Indication: PAIN
     Route: 048

REACTIONS (3)
  - BODY TEMPERATURE INCREASED [None]
  - NEUTROPENIC SEPSIS [None]
  - PRODUCTIVE COUGH [None]
